FAERS Safety Report 5829683-6 (Version None)
Quarter: 2008Q3

REPORT INFORMATION
  Report Type: 
  Country: None (occurrence: None)
  Receive Date: 20080731
  Receipt Date: 20080731
  Transmission Date: 20090109
  Serious: No
  Sender: FDA-Public Use
  Company Number: None

PATIENT

DRUGS (1)
  1. HYDROCORTISONE [Suspect]
     Dosage: RECTAL
     Route: 054

REACTIONS (1)
  - MEDICATION ERROR [None]
